FAERS Safety Report 17744826 (Version 1)
Quarter: 2020Q2

REPORT INFORMATION
  Report Type: Spontaneous
  Country: US (occurrence: US)
  Receive Date: 20200504
  Receipt Date: 20200504
  Transmission Date: 20200714
  Serious: No
  Sender: FDA-Public Use
  Company Number: None

PATIENT
  Age: 66 Year
  Sex: Male

DRUGS (2)
  1. BRAFTOVI [Suspect]
     Active Substance: ENCORAFENIB
     Route: 048
  2. MEKTOVI [Concomitant]
     Active Substance: BINIMETINIB

REACTIONS (2)
  - Gastrointestinal toxicity [None]
  - Rash [None]

NARRATIVE: CASE EVENT DATE: 20200504
